FAERS Safety Report 8029386-6 (Version None)
Quarter: 2012Q1

REPORT INFORMATION
  Report Type: 
  Country: None (occurrence: None)
  Receive Date: 20120106
  Receipt Date: 20111229
  Transmission Date: 20120608
  Serious: Yes (Death, Life-Threatening, Hospitalization)
  Sender: FDA-Public Use
  Company Number: DE-ROCHE-1021377

PATIENT
  Sex: Male

DRUGS (8)
  1. MABTHERA [Suspect]
     Indication: NON-HODGKIN'S LYMPHOMA
     Dosage: THE PATIENT RECIEVED THE LAST DOSE ON 17 JUL 2008
     Route: 042
     Dates: start: 20071219, end: 20080718
  2. ASPIRIN [Concomitant]
  3. METOPROLOL SUCCINATE [Concomitant]
  4. PANTOPRAZOLE SODIUM [Concomitant]
  5. CYCLOPHOSPHAMIDE [Suspect]
     Indication: NON-HODGKIN'S LYMPHOMA
     Dosage: THE PATIENT RECIEVED THE LAST DOSE ON 17 JUL 2008
     Route: 042
     Dates: start: 20071219, end: 20080718
  6. PLAVIX [Concomitant]
  7. ESIDRIX [Concomitant]
  8. PENTOSTATIN [Suspect]
     Indication: NON-HODGKIN'S LYMPHOMA
     Dosage: THE PATIENT RECIEVED THE LAST DOSE ON 17 JUL 2008
     Route: 042
     Dates: start: 20071219, end: 20080718

REACTIONS (4)
  - GENERAL PHYSICAL HEALTH DETERIORATION [None]
  - PYREXIA [None]
  - DELIRIUM [None]
  - LYMPH NODE TUBERCULOSIS [None]
